FAERS Safety Report 4605054-5 (Version None)
Quarter: 2005Q1

REPORT INFORMATION
  Report Type: 
  Country: None (occurrence: None)
  Receive Date: 20050311
  Receipt Date: 20050308
  Transmission Date: 20050727
  Serious: Yes (Death)
  Sender: FDA-Public Use
  Company Number: DE-BRISTOL-MYERS SQUIBB COMPANY-12890992

PATIENT
  Age: 61 Year
  Sex: Female
  Weight: 95 kg

DRUGS (10)
  1. CYCLOPHOSPHAMIDE [Suspect]
     Indication: BREAST CANCER
     Route: 042
     Dates: start: 20050223
  2. TAXOL [Suspect]
     Indication: BREAST CANCER
     Route: 042
     Dates: start: 20050112, end: 20050209
  3. EPIRUBICIN [Suspect]
     Indication: BREAST CANCER
     Route: 042
     Dates: start: 20041126, end: 20041223
  4. DEXAMETHASONE [Concomitant]
     Route: 042
     Dates: start: 20041128
  5. GRANISETRON [Concomitant]
     Route: 042
     Dates: start: 20050223
  6. UROMITEXAN [Concomitant]
     Dosage: DOSE 3 X 450 MG
     Route: 042
     Dates: start: 20050223
  7. RAMIPRIL [Concomitant]
     Route: 048
     Dates: start: 19990101
  8. BELOC [Concomitant]
     Route: 048
     Dates: start: 19990101
  9. NEULASTA [Concomitant]
     Route: 058
     Dates: start: 20040224
  10. ARANESP [Concomitant]
     Route: 058
     Dates: start: 20050223

REACTIONS (2)
  - LEUKOPENIA [None]
  - PULMONARY OEDEMA [None]
